FAERS Safety Report 14302862 (Version 1)
Quarter: 2017Q4

REPORT INFORMATION
  Report Type: Spontaneous
  Country: US (occurrence: US)
  Receive Date: 20171219
  Receipt Date: 20171219
  Transmission Date: 20180321
  Serious: Yes (Death)
  Sender: FDA-Public Use
  Company Number: US-BAYER-2017-240015

PATIENT
  Age: 54 Year
  Sex: Female

DRUGS (6)
  1. ACETYLSALICYLIC ACID (} 100 MG) [Suspect]
     Active Substance: ASPIRIN
     Route: 048
  2. BUPROPION. [Suspect]
     Active Substance: BUPROPION
     Dosage: UNK
     Route: 048
  3. VITAMIN D [Suspect]
     Active Substance: CHOLECALCIFEROL
     Dosage: UNK
     Route: 048
  4. LINACLOTIDE [Suspect]
     Active Substance: LINACLOTIDE
     Route: 048
  5. LORATADINE. [Suspect]
     Active Substance: LORATADINE
     Dosage: UNK
     Route: 048
  6. VENLAFAXINE [Suspect]
     Active Substance: VENLAFAXINE HYDROCHLORIDE
     Route: 048

REACTIONS (1)
  - Toxicity to various agents [Fatal]
